FAERS Safety Report 8077535-6 (Version None)
Quarter: 2012Q1

REPORT INFORMATION
  Report Type: 
  Country: None (occurrence: None)
  Receive Date: 20120127
  Receipt Date: 20120118
  Transmission Date: 20120608
  Serious: Yes (Hospitalization)
  Sender: FDA-Public Use
  Company Number: CH-ASTRAZENECA-2012SE04134

PATIENT
  Age: 69 Year
  Sex: Female

DRUGS (5)
  1. TENORMIN [Suspect]
     Route: 048
     Dates: end: 20111201
  2. FLUOXETINE HYDROCHLORIDE [Suspect]
     Route: 048
     Dates: end: 20111201
  3. BLOCKERS [Concomitant]
     Indication: HYPERTENSIVE HEART DISEASE
  4. DIURETICS [Concomitant]
     Indication: HYPERTENSIVE HEART DISEASE
  5. FUROSEMIDE [Suspect]
     Route: 048
     Dates: end: 20111201

REACTIONS (2)
  - PRESYNCOPE [None]
  - HYPONATRAEMIA [None]
